FAERS Safety Report 17899749 (Version 1)
Quarter: 2020Q2

REPORT INFORMATION
  Report Type: Spontaneous
  Country: US (occurrence: US)
  Receive Date: 20200615
  Receipt Date: 20200615
  Transmission Date: 20200714
  Serious: Yes (Disabling)
  Sender: FDA-Public Use
  Company Number: None

PATIENT
  Age: 65 Year
  Sex: Female
  Weight: 81 kg

DRUGS (8)
  1. POTASSIUM [Concomitant]
     Active Substance: POTASSIUM
  2. OXYGEN. [Concomitant]
     Active Substance: OXYGEN
  3. VITAMIN D, C [Concomitant]
  4. LOSARTIN [Concomitant]
     Active Substance: LOSARTAN
  5. CALCIUM [Concomitant]
     Active Substance: CALCIUM
  6. CPAP MACHINE [Concomitant]
  7. MULTI VITAMIN [Concomitant]
     Active Substance: VITAMINS
  8. STIOLTO RESPIMAT [Suspect]
     Active Substance: OLODATEROL HYDROCHLORIDE\TIOTROPIUM BROMIDE MONOHYDRATE
     Indication: CHRONIC OBSTRUCTIVE PULMONARY DISEASE
     Dosage: ?          OTHER STRENGTH:UNKNOWN;QUANTITY:2 INHALATION(S);?
     Route: 055
     Dates: start: 20200309, end: 20200615

REACTIONS (5)
  - Rhinorrhoea [None]
  - Muscle spasms [None]
  - Back pain [None]
  - Urinary incontinence [None]
  - Vision blurred [None]

NARRATIVE: CASE EVENT DATE: 20200615
